FAERS Safety Report 7455892-9 (Version None)
Quarter: 2011Q2

REPORT INFORMATION
  Report Type: 
  Country: None (occurrence: None)
  Receive Date: 20110503
  Receipt Date: 20110107
  Transmission Date: 20111010
  Serious: Yes (Hospitalization)
  Sender: FDA-Public Use
  Company Number: B0692607A

PATIENT
  Sex: Female
  Weight: 3 kg

DRUGS (3)
  1. SUBUTEX [Suspect]
     Dosage: .8MG PER DAY
     Route: 064
     Dates: end: 20100824
  2. SERESTA [Suspect]
     Route: 064
     Dates: end: 20100824
  3. DEROXAT [Suspect]
     Route: 064
     Dates: end: 20100824

REACTIONS (2)
  - DRUG WITHDRAWAL SYNDROME NEONATAL [None]
  - DRUG EXPOSURE DURING PREGNANCY [None]
